FAERS Safety Report 8136858-2 (Version None)
Quarter: 2012Q1

REPORT INFORMATION
  Report Type: 
  Country: None (occurrence: None)
  Receive Date: 20120214
  Receipt Date: 20120207
  Transmission Date: 20120608
  Serious: Yes (Hospitalization)
  Sender: FDA-Public Use
  Company Number: US-ROCHE-1012281

PATIENT

DRUGS (5)
  1. HERCEPTIN [Suspect]
     Dosage: OVER 30 MIN (MAINTENANCE DOSE) EVERY WK FOR 51 WKS
     Route: 042
  2. CYCLOPHOSPHAMIDE [Suspect]
     Indication: BREAST CANCER
     Dosage: OVER 30 MIN, ON DAY 1 EVERY 21 DAY FOR 4 WKS
     Route: 042
     Dates: start: 20040206
  3. PACLITAXEL [Suspect]
     Indication: BREAST CANCER
     Dosage: STARTING DAY 1 OF WK 13, X 12
     Route: 042
  4. HERCEPTIN [Suspect]
     Indication: BREAST CANCER
     Dosage: OVER 90 MINUTES (LOADING DOSE) DAY 1 OF WK 13 ONLY
     Route: 042
  5. DOXORUBICIN HCL [Suspect]
     Indication: BREAST CANCER
     Dosage: ON DAY 1, EVERY 21 DAY FOR 4 WEEKS
     Route: 042
     Dates: start: 20040206

REACTIONS (7)
  - INFECTION [None]
  - COUGH [None]
  - DYSPNOEA [None]
  - PLEURITIC PAIN [None]
  - URINARY TRACT PAIN [None]
  - CHILLS [None]
  - PYREXIA [None]
